FAERS Safety Report 20056047 (Version 1)
Quarter: 2021Q4

REPORT INFORMATION
  Report Type: Spontaneous
  Country: US (occurrence: None)
  Receive Date: 20211111
  Receipt Date: 20211111
  Transmission Date: 20220303
  Serious: No
  Sender: FDA-Public Use
  Company Number: US-ROCHE-2669710

PATIENT
  Age: 55 Year
  Sex: Female

DRUGS (1)
  1. PULMOZYME [Suspect]
     Active Substance: DORNASE ALFA
     Indication: Product used for unknown indication
     Dosage: DOSE 2.5MG/2.5ML?NEB 1MG/ML
     Route: 055
     Dates: start: 201907

REACTIONS (4)
  - Neuralgia [Unknown]
  - Alopecia [Unknown]
  - Arthritis [Unknown]
  - Cystic fibrosis [Unknown]

NARRATIVE: CASE EVENT DATE: 20191210
